FAERS Safety Report 5227082-1 (Version None)
Quarter: 2007Q1

REPORT INFORMATION
  Report Type: 
  Country: None (occurrence: None)
  Receive Date: 20070201
  Receipt Date: 20070201
  Transmission Date: 20070707
  Serious: No
  Sender: FDA-Public Use
  Company Number: None

PATIENT
  Age: 41 Year
  Sex: Female

DRUGS (8)
  1. EXENATIDE [Suspect]
     Dosage: 5-10 MCG
  2. LISINOPRIL [Concomitant]
  3. ASPIRIN [Concomitant]
  4. INSULIN U-500 [Concomitant]
  5. INSULIN GLARGINE [Concomitant]
  6. METFORMIN HCL [Concomitant]
  7. DEPO-PROVERA [Concomitant]
  8. PAROXETINE HCL [Concomitant]

REACTIONS (2)
  - PAIN [None]
  - URTICARIA [None]
